FAERS Safety Report 13790295 (Version 3)
Quarter: 2017Q4

REPORT INFORMATION
  Report Type: Report from Study
  Country: US (occurrence: US)
  Receive Date: 20170725
  Receipt Date: 20171103
  Transmission Date: 20180320
  Serious: Yes (Hospitalization, Other)
  Sender: FDA-Public Use
  Company Number: US-AMGEN-USASL2017108784

PATIENT
  Age: 15 Year
  Sex: Female

DRUGS (2)
  1. ENBREL [Suspect]
     Active Substance: ETANERCEPT
     Indication: PSORIASIS
     Dosage: 25 MG, UNK
     Route: 030
  2. ENBREL [Suspect]
     Active Substance: ETANERCEPT
     Dosage: 37.5 MG, QWK
     Route: 065

REACTIONS (5)
  - Intentional self-injury [Unknown]
  - Incorrect dose administered [Unknown]
  - Incorrect route of drug administration [Unknown]
  - Suicidal ideation [Unknown]
  - Product label issue [Unknown]

NARRATIVE: CASE EVENT DATE: 201710
